FAERS Safety Report 23299937 (Version 1)
Quarter: 2023Q4

REPORT INFORMATION
  Report Type: Report from Study
  Country: IN (occurrence: IN)
  Receive Date: 20231215
  Receipt Date: 20231215
  Transmission Date: 20240110
  Serious: Yes (Death, Hospitalization, Other)
  Sender: FDA-Public Use
  Company Number: IN-CIPLA LTD.-2023IN07779

PATIENT

DRUGS (8)
  1. METOPROLOL SUCCINATE [Suspect]
     Active Substance: METOPROLOL SUCCINATE
     Indication: Product used for unknown indication
     Dosage: 1 DOSE USED AND 2 FREQUENCY
     Route: 048
  2. PETRIL MD [Concomitant]
     Indication: Product used for unknown indication
     Dosage: 25 MG
     Route: 065
  3. ROZUCOR GOLD [Concomitant]
     Indication: Product used for unknown indication
     Dosage: UNK
     Route: 065
  4. VERIFICA M [Concomitant]
     Indication: Product used for unknown indication
     Dosage: 50+50 MG
     Route: 065
  5. AMLOZAAR [Concomitant]
     Indication: Product used for unknown indication
     Dosage: UNK
     Route: 065
  6. TORSEMIDE [Concomitant]
     Active Substance: TORSEMIDE
     Indication: Product used for unknown indication
     Dosage: 10 MG
     Route: 065
  7. K-MET [Concomitant]
     Indication: Product used for unknown indication
     Dosage: UNK
     Route: 065
  8. ARMICOR [Concomitant]
     Indication: Product used for unknown indication
     Dosage: UNK
     Route: 065

REACTIONS (1)
  - Cardiac failure [Fatal]

NARRATIVE: CASE EVENT DATE: 20231119
